FAERS Safety Report 8742091 (Version 3)
Quarter: 2012Q4

REPORT INFORMATION
  Report Type: 
  Country: FR (occurrence: FR)
  Receive Date: 20120824
  Receipt Date: 20120918
  Transmission Date: 20130627
  Serious: Yes (Other)
  Sender: FDA-Public Use
  Company Number: FR-PFIZER INC-2012206069

PATIENT
  Age: 65 Year
  Sex: Male

DRUGS (6)
  1. CORDARONE [Suspect]
     Dosage: UNK
     Route: 048
     Dates: start: 2009, end: 201208
  2. PLAVIX [Concomitant]
     Dosage: UNK
  3. CRESTOR [Concomitant]
     Dosage: UNK
  4. PRAXILENE [Concomitant]
     Dosage: UNK
  5. KARDEGIC [Concomitant]
     Dosage: UNK
  6. COVERSYL [Concomitant]
     Dosage: UNK

REACTIONS (6)
  - Hyperthyroidism [Recovered/Resolved]
  - Thyroid disorder [Unknown]
  - Asthenia [Unknown]
  - Anaemia [Unknown]
  - Nervousness [Unknown]
  - Nightmare [Unknown]
